FAERS Safety Report 10134927 (Version 2)
Quarter: 2015Q1

REPORT INFORMATION
  Report Type: Other
  Country: US (occurrence: US)
  Receive Date: 20140428
  Receipt Date: 20150213
  Transmission Date: 20150720
  Serious: Yes (Hospitalization, Other)
  Sender: FDA-Public Use
  Company Number: US-GSKPPD-2014GSK036408

PATIENT
  Age: 68 Year
  Sex: Female

DRUGS (9)
  1. TRICOR [Concomitant]
     Active Substance: FENOFIBRATE
  2. AVANDIA [Suspect]
     Active Substance: ROSIGLITAZONE MALEATE
     Indication: DIABETES MELLITUS
     Dosage: AVANDIA WAS NOT LISTED AMONG THE PATIENTS RECORDS REVIEWED.
     Route: 048
  3. COLACE [Concomitant]
     Active Substance: DOCUSATE SODIUM
  4. LIPITOR [Concomitant]
     Active Substance: ATORVASTATIN CALCIUM
  5. COZAAR [Concomitant]
     Active Substance: LOSARTAN POTASSIUM
  6. ACTOS [Concomitant]
     Active Substance: PIOGLITAZONE HYDROCHLORIDE
  7. LASIX [Concomitant]
     Active Substance: FUROSEMIDE
  8. HYDROCHLOROTHIAZIDE. [Concomitant]
     Active Substance: HYDROCHLOROTHIAZIDE
  9. ECOTRIN [Concomitant]
     Active Substance: ASPIRIN

REACTIONS (1)
  - Myocardial infarction [Recovered/Resolved]

NARRATIVE: CASE EVENT DATE: 20080916
